FAERS Safety Report 8841653 (Version 1)
Quarter: 2012Q4

REPORT INFORMATION
  Report Type: 
  Country: US (occurrence: US)
  Receive Date: 20121015
  Receipt Date: 20121015
  Transmission Date: 20130627
  Serious: No
  Sender: FDA-Public Use
  Company Number: US-MYLANLABS-2012S1005174

PATIENT
  Age: 51 Year
  Sex: Male

DRUGS (4)
  1. DICYCLOMINE HYDROCHLORIDE [Suspect]
     Indication: IRRITABLE BOWEL SYNDROME
     Route: 048
     Dates: start: 20120201, end: 20120301
  2. WELLBUTRIN XL [Concomitant]
     Route: 048
  3. KLONOPIN [Concomitant]
     Route: 048
  4. PRILOSEC [Concomitant]
     Route: 048

REACTIONS (10)
  - Dyspnoea [Recovered/Resolved]
  - Vision blurred [Recovered/Resolved]
  - Asthenia [Recovered/Resolved]
  - Constipation [Recovered/Resolved]
  - Groin pain [Recovered/Resolved]
  - Bladder pain [Recovered/Resolved]
  - Dysuria [Recovered/Resolved]
  - Agitation [Recovered/Resolved]
  - Abdominal distension [Recovered/Resolved]
  - Dry mouth [Recovered/Resolved]
